FAERS Safety Report 11707013 (Version 12)
Quarter: 2019Q2

REPORT INFORMATION
  Report Type: Spontaneous
  Country: US (occurrence: US)
  Receive Date: 20151106
  Receipt Date: 20190402
  Transmission Date: 20190711
  Serious: Yes (Hospitalization)
  Sender: FDA-Public Use
  Company Number: US-ACTELION PHARMACEUTICALS US, INC.-A-US2015-126831

PATIENT
  Age: 75 Year
  Sex: Female

DRUGS (22)
  1. RIOCIGUAT. [Concomitant]
     Active Substance: RIOCIGUAT
  2. VOLTAREN [Concomitant]
     Active Substance: DICLOFENAC SODIUM
  3. NASONEX [Concomitant]
     Active Substance: MOMETASONE FUROATE
  4. ATENOLOL. [Concomitant]
     Active Substance: ATENOLOL
  5. RECLAST [Concomitant]
     Active Substance: ZOLEDRONIC ACID
  6. ALPRAZOLAM. [Concomitant]
     Active Substance: ALPRAZOLAM
  7. OXYGEN. [Concomitant]
     Active Substance: OXYGEN
  8. OPSUMIT [Suspect]
     Active Substance: MACITENTAN
     Indication: PULMONARY HYPERTENSION
     Dosage: 10 MG, QD
     Route: 048
     Dates: start: 20141002
  9. BELVIQ [Concomitant]
     Active Substance: LORCASERIN HYDROCHLORIDE
  10. FLUOXETINE [Concomitant]
     Active Substance: FLUOXETINE HYDROCHLORIDE
  11. VENTOLIN [Concomitant]
     Active Substance: ALBUTEROL SULFATE
  12. FUROSEMIDE. [Concomitant]
     Active Substance: FUROSEMIDE
  13. CRESTOR [Concomitant]
     Active Substance: ROSUVASTATIN CALCIUM
  14. SYNTHROID [Concomitant]
     Active Substance: LEVOTHYROXINE SODIUM
  15. LANTUS [Concomitant]
     Active Substance: INSULIN GLARGINE
  16. JANUVIA [Concomitant]
     Active Substance: SITAGLIPTIN PHOSPHATE
  17. ACETAZOLAMIDE. [Concomitant]
     Active Substance: ACETAZOLAMIDE
  18. OTEZLA [Concomitant]
     Active Substance: APREMILAST
  19. OXYCONTIN [Concomitant]
     Active Substance: OXYCODONE HYDROCHLORIDE
  20. COUMADIN [Concomitant]
     Active Substance: WARFARIN SODIUM
  21. DOXEPIN [Concomitant]
     Active Substance: DOXEPIN
  22. VITAMIN D2 [Concomitant]
     Active Substance: ERGOCALCIFEROL

REACTIONS (15)
  - Extra dose administered [Recovered/Resolved]
  - Product dose omission [Unknown]
  - Psoriasis [Unknown]
  - Unevaluable event [Unknown]
  - Fall [Unknown]
  - Swelling [Unknown]
  - Hypoaesthesia [Unknown]
  - Haemorrhage [Unknown]
  - Seizure [Unknown]
  - Head injury [Unknown]
  - Lower respiratory tract infection [Not Recovered/Not Resolved]
  - Epistaxis [Recovered/Resolved]
  - Dyspnoea [Unknown]
  - Encephalitis viral [Not Recovered/Not Resolved]
  - Dysuria [Not Recovered/Not Resolved]

NARRATIVE: CASE EVENT DATE: 201510
